FAERS Safety Report 6915942-2 (Version None)
Quarter: 2010Q3

REPORT INFORMATION
  Report Type: 
  Country: None (occurrence: None)
  Receive Date: 20100809
  Receipt Date: 20100809
  Transmission Date: 20110219
  Serious: Yes (Other)
  Sender: FDA-Public Use
  Company Number: None

PATIENT
  Sex: Female
  Weight: 68.0396 kg

DRUGS (2)
  1. KEFLEX [Suspect]
     Indication: INFECTION
     Dosage: 1 CAPSULE  4 TIMES A DAY PO
     Route: 048
     Dates: start: 20100728, end: 20100805
  2. KEFLEX [Suspect]
     Indication: TINEA PEDIS
     Dosage: 1 CAPSULE  4 TIMES A DAY PO
     Route: 048
     Dates: start: 20100728, end: 20100805

REACTIONS (7)
  - BLISTER [None]
  - BURNING SENSATION [None]
  - DISCOMFORT [None]
  - HYPERKERATOSIS [None]
  - PAIN [None]
  - PRURITUS [None]
  - SWELLING [None]
